FAERS Safety Report 14460556 (Version 9)
Quarter: 2019Q1

REPORT INFORMATION
  Report Type: Spontaneous
  Country: US (occurrence: US)
  Receive Date: 20180130
  Receipt Date: 20190318
  Transmission Date: 20190417
  Serious: Yes (Other)
  Sender: FDA-Public Use
  Company Number: US-BRISTOL-MYERS SQUIBB COMPANY-BMS-2018-005148

PATIENT
  Age: 54 Year
  Sex: Male
  Weight: 136.96 kg

DRUGS (1)
  1. ORENCIA [Suspect]
     Active Substance: ABATACEPT
     Indication: RHEUMATOID ARTHRITIS
     Dosage: 125 MG, QWK
     Route: 058
     Dates: start: 201606

REACTIONS (6)
  - Nasopharyngitis [Unknown]
  - Sciatica [Unknown]
  - Product dose omission [Unknown]
  - Limb discomfort [Not Recovered/Not Resolved]
  - Abdominal pain upper [Unknown]
  - Memory impairment [Unknown]

NARRATIVE: CASE EVENT DATE: 20190114
